FAERS Safety Report 5272283-X (Version None)
Quarter: 2007Q1

REPORT INFORMATION
  Report Type: 
  Country: None (occurrence: None)
  Receive Date: 20070322
  Receipt Date: 20070315
  Transmission Date: 20070707
  Serious: Yes (Other)
  Sender: FDA-Public Use
  Company Number: GBWYE225113OCT06

PATIENT
  Sex: Male

DRUGS (5)
  1. VENLAFAXINE HYDROCHLORIDE [Suspect]
     Dosage: UNKNOWN
  2. PARIET [Concomitant]
     Dosage: 25MG, FREQUENCY UNSPECIFIED
  3. ATENOLOL [Concomitant]
     Dosage: UNKNOWN
  4. CITALOPRAM HYDROBROMIDE [Suspect]
     Indication: DEPRESSION
     Dosage: UNKNOWN
     Route: 048
     Dates: start: 20031229
  5. MIRTAZAPINE [Suspect]
     Dosage: UNKNOWN
     Dates: start: 20041102

REACTIONS (31)
  - ABNORMAL DREAMS [None]
  - AFFECT LABILITY [None]
  - AGEUSIA [None]
  - AGITATION [None]
  - ANHEDONIA [None]
  - ANHIDROSIS [None]
  - ANOREXIA [None]
  - ANOSMIA [None]
  - BACK PAIN [None]
  - CONFUSIONAL STATE [None]
  - DIARRHOEA [None]
  - DIZZINESS [None]
  - EMOTIONAL DISORDER [None]
  - FEELING ABNORMAL [None]
  - FEELING OF BODY TEMPERATURE CHANGE [None]
  - FLAT AFFECT [None]
  - HALLUCINATION [None]
  - HEADACHE [None]
  - HEARING IMPAIRED [None]
  - HYPOAESTHESIA [None]
  - INFLUENZA LIKE ILLNESS [None]
  - INSOMNIA [None]
  - MALAISE [None]
  - MUSCLE SPASMS [None]
  - PARAESTHESIA [None]
  - PERSONALITY CHANGE [None]
  - SEROTONIN SYNDROME [None]
  - SOMNOLENCE [None]
  - THIRST DECREASED [None]
  - UNEVALUABLE EVENT [None]
  - VISUAL ACUITY REDUCED [None]
